FAERS Safety Report 10150920 (Version 1)
Quarter: 2014Q2

REPORT INFORMATION
  Report Type: Spontaneous
  Country: US (occurrence: US)
  Receive Date: 20140502
  Receipt Date: 20140502
  Transmission Date: 20141212
  Serious: Yes (Other)
  Sender: FDA-Public Use
  Company Number: US-PFIZER INC-2014120924

PATIENT
  Sex: 0

DRUGS (1)
  1. SUTENT [Suspect]
     Dosage: 12.5 MG 3 TIMES DAILY (4 WEEKS ON, 2 WEEKS OFF)
     Route: 048
     Dates: start: 20140307

REACTIONS (2)
  - Nausea [Unknown]
  - Abdominal discomfort [Unknown]
